FAERS Safety Report 9430527 (Version 1)
Quarter: 2013Q3

REPORT INFORMATION
  Report Type: Report from Study
  Country: US (occurrence: US)
  Receive Date: 20130730
  Receipt Date: 20130730
  Transmission Date: 20140515
  Serious: No
  Sender: FDA-Public Use
  Company Number: US-ABBOTT-13P-163-1086038-00

PATIENT
  Age: 61 Year
  Sex: Male
  Weight: 114.41 kg

DRUGS (8)
  1. NIASPAN (COATED) [Suspect]
     Indication: LABORATORY TEST ABNORMAL
     Dosage: IN THE MORNING
     Route: 048
     Dates: start: 20130429
  2. NIASPAN (COATED) [Suspect]
     Dosage: IN THE MORNING TODAY
     Route: 048
  3. HCTZ [Concomitant]
     Indication: PRODUCT USED FOR UNKNOWN INDICATION
     Route: 048
  4. LISINOPRIL [Concomitant]
     Indication: PRODUCT USED FOR UNKNOWN INDICATION
     Route: 048
  5. LEVOTHYROXINE [Concomitant]
     Indication: PRODUCT USED FOR UNKNOWN INDICATION
     Route: 048
  6. BUPROPRION XL [Concomitant]
     Indication: PRODUCT USED FOR UNKNOWN INDICATION
     Route: 048
  7. CLONAZEPAM [Concomitant]
     Indication: PRODUCT USED FOR UNKNOWN INDICATION
     Dosage: AT BEDTIME
     Route: 048
  8. ASPIRIN [Concomitant]
     Indication: PRODUCT USED FOR UNKNOWN INDICATION
     Dosage: IN THE MORNING WITH NIASPAN DOSE
     Route: 048

REACTIONS (1)
  - Feeling hot [Unknown]
